FAERS Safety Report 25871367 (Version 4)
Quarter: 2025Q4

REPORT INFORMATION
  Report Type: Spontaneous
  Country: EU (occurrence: EU)
  Receive Date: 20251001
  Receipt Date: 20251014
  Transmission Date: 20260118
  Serious: Yes (Life-Threatening, Other)
  Sender: PFIZER
  Company Number: None

PATIENT
  Sex: Female

DRUGS (7)
  1. IBRANCE [Suspect]
     Active Substance: PALBOCICLIB
     Indication: Breast neoplasm
     Dosage: 125 MG, 1 TABLET DAILY FOR 21 CONSECUTIVE DAYS
     Route: 048
     Dates: start: 20241202
  2. IBRANCE [Suspect]
     Active Substance: PALBOCICLIB
     Dosage: 100 MG, CYCLIC
     Route: 048
     Dates: start: 20250115
  3. IBRANCE [Suspect]
     Active Substance: PALBOCICLIB
     Dosage: 100 MG, CYCLIC
     Route: 048
     Dates: start: 20250212
  4. IBRANCE [Suspect]
     Active Substance: PALBOCICLIB
     Dosage: 75 MG ONCE DAILY FOR 21 DAYS
     Route: 048
     Dates: start: 20250430, end: 20250923
  5. XGEVA [Concomitant]
     Active Substance: DENOSUMAB
     Dosage: UNK
  6. NALOXONE HYDROCHLORIDE\OXYCODONE HYDROCHLORIDE [Concomitant]
     Active Substance: NALOXONE HYDROCHLORIDE\OXYCODONE HYDROCHLORIDE
     Dosage: UNK
  7. LETROZOLE [Concomitant]
     Active Substance: LETROZOLE
     Dosage: UNK

REACTIONS (1)
  - Neutropenia [Recovering/Resolving]

NARRATIVE: CASE EVENT DATE: 20250627
